FAERS Safety Report 4542292-4 (Version None)
Quarter: 2004Q4

REPORT INFORMATION
  Report Type: 
  Country: None (occurrence: None)
  Receive Date: 20041227
  Receipt Date: 20041206
  Transmission Date: 20050328
  Serious: Yes (Other)
  Sender: FDA-Public Use
  Company Number: 9427

PATIENT
  Age: 63 Year
  Sex: Female
  Weight: 60.3284 kg

DRUGS (17)
  1. CYTARABINE [Suspect]
     Indication: ACUTE MYELOID LEUKAEMIA
     Dosage: 100 MG/M2 DAILY IV
     Route: 042
     Dates: start: 20041109
  2. DAUNORUBICIN HCL [Suspect]
     Indication: ACUTE MYELOID LEUKAEMIA
     Dosage: 45 MG/M2 DAILY IV
     Route: 042
     Dates: start: 20041109
  3. PLACEBO [Suspect]
     Indication: ACUTE MYELOID LEUKAEMIA
     Dosage: 550 MG DAILY IV
     Route: 042
     Dates: start: 20041109
  4. ALLOPURINOL [Concomitant]
  5. AMBIEN [Concomitant]
  6. BENADRYL [Concomitant]
  7. CARVEDILOL [Concomitant]
  8. COLASE [Concomitant]
  9. LISINOPRIL [Concomitant]
  10. POTASSIUM CHLORIDE [Concomitant]
  11. POTASSIUM PHOSPHATES [Concomitant]
  12. PREDNISONE [Concomitant]
  13. PROTONIX [Concomitant]
  14. TEQUIN [Concomitant]
  15. TYLENOL [Concomitant]
  16. VALTREX [Concomitant]
  17. FLUCONAZOLE [Concomitant]

REACTIONS (6)
  - ALANINE AMINOTRANSFERASE INCREASED [None]
  - ASPARTATE AMINOTRANSFERASE INCREASED [None]
  - BLOOD BILIRUBIN INCREASED [None]
  - CHEST DISCOMFORT [None]
  - SINUS BRADYCARDIA [None]
  - TRANSAMINASES INCREASED [None]
